FAERS Safety Report 11846335 (Version 1)
Quarter: 2015Q4

REPORT INFORMATION
  Report Type: Spontaneous
  Country: US (occurrence: US)
  Receive Date: 20151217
  Receipt Date: 20151217
  Transmission Date: 20160305
  Serious: No
  Sender: FDA-Public Use
  Company Number: US-MEDA-2015030042

PATIENT
  Age: 83 Year
  Sex: Female
  Weight: 57 kg

DRUGS (4)
  1. SALINE SOLUTION [Concomitant]
     Active Substance: SODIUM CHLORIDE
     Indication: SINUS DISORDER
  2. AZELASTINE HYDROCHLORIDE. [Suspect]
     Active Substance: AZELASTINE HYDROCHLORIDE
     Indication: NASAL CONGESTION
     Dates: start: 20150306, end: 20150307
  3. AZELASTINE HYDROCHLORIDE. [Suspect]
     Active Substance: AZELASTINE HYDROCHLORIDE
     Indication: SINUS DISORDER
     Dates: start: 20150306, end: 20150307
  4. SALINE SOLUTION [Concomitant]
     Active Substance: SODIUM CHLORIDE
     Indication: NASAL CONGESTION

REACTIONS (4)
  - Product use issue [Recovered/Resolved]
  - Diarrhoea [Recovering/Resolving]
  - Dry mouth [Recovered/Resolved]
  - Lip swelling [Recovering/Resolving]

NARRATIVE: CASE EVENT DATE: 20150306
